FAERS Safety Report 21093934 (Version 1)
Quarter: 2022Q3

REPORT INFORMATION
  Report Type: Spontaneous
  Country: US (occurrence: US)
  Receive Date: 20220718
  Receipt Date: 20220718
  Transmission Date: 20221027
  Serious: Yes (Other)
  Sender: FDA-Public Use
  Company Number: US-SA-SAC20220712001877

PATIENT
  Age: 59 Year
  Sex: Male

DRUGS (1)
  1. ZANTAC [Suspect]
     Active Substance: RANITIDINE HYDROCHLORIDE
     Indication: Abdominal discomfort
     Dosage: OTHER
     Dates: start: 200001, end: 202001

REACTIONS (3)
  - Colorectal cancer [Unknown]
  - Skin cancer [Not Recovered/Not Resolved]
  - Bladder cancer [Unknown]

NARRATIVE: CASE EVENT DATE: 20111101
